FAERS Safety Report 12392001 (Version 1)
Quarter: 2016Q2

REPORT INFORMATION
  Report Type: Spontaneous
  Country: US (occurrence: US)
  Receive Date: 20160523
  Receipt Date: 20160523
  Transmission Date: 20160815
  Serious: No
  Sender: FDA-Public Use
  Company Number: US-009507513-1605USA009135

PATIENT
  Sex: Female
  Weight: 47.62 kg

DRUGS (2)
  1. NEXPLANON [Suspect]
     Active Substance: ETONOGESTREL
     Indication: CONTRACEPTION
     Dosage: 1 DF, UNK
     Route: 059
     Dates: start: 20140822
  2. CARIPRAZINE [Concomitant]
     Active Substance: CARIPRAZINE

REACTIONS (1)
  - Implant site urticaria [Not Recovered/Not Resolved]

NARRATIVE: CASE EVENT DATE: 20140824
